FAERS Safety Report 13754815 (Version 1)
Quarter: 2017Q3

REPORT INFORMATION
  Report Type: Spontaneous
  Country: US (occurrence: US)
  Receive Date: 20170714
  Receipt Date: 20170714
  Transmission Date: 20171127
  Serious: Yes (Hospitalization)
  Sender: FDA-Public Use
  Company Number: US-LEXICON PHARMACEUTICALS, INC-17-1606-00508

PATIENT
  Age: 70 Year
  Sex: Female

DRUGS (14)
  1. FIBERCON [Concomitant]
     Active Substance: CALCIUM POLYCARBOPHIL
  2. CALCIUM-VITAMIN D [Concomitant]
  3. GOOD SENSE IBUPROFEN [Concomitant]
     Active Substance: IBUPROFEN
  4. IMODIUM [Concomitant]
     Active Substance: LOPERAMIDE HYDROCHLORIDE
  5. SPIRONOLACT [Concomitant]
  6. WELCHOL [Concomitant]
     Active Substance: COLESEVELAM HYDROCHLORIDE
  7. ROSUVASTATIN CALCIUM. [Concomitant]
     Active Substance: ROSUVASTATIN CALCIUM
  8. TELOTRISTAT ETHYL [Suspect]
     Active Substance: TELOTRISTAT ETHYL
     Indication: CARCINOID SYNDROME
     Route: 048
     Dates: start: 20170424
  9. LOMOTIL [Concomitant]
     Active Substance: ATROPINE SULFATE\DIPHENOXYLATE HYDROCHLORIDE
  10. POTASSIUM [Concomitant]
     Active Substance: POTASSIUM
  11. GLYCOPYRROLATE. [Concomitant]
     Active Substance: GLYCOPYRROLATE
  12. ASPIR-LOW [Concomitant]
     Active Substance: ASPIRIN
  13. NITRO-BID [Concomitant]
     Active Substance: NITROGLYCERIN
  14. METOPROLOL SUCCINATE. [Concomitant]
     Active Substance: METOPROLOL SUCCINATE

REACTIONS (1)
  - Intestinal obstruction [Unknown]

NARRATIVE: CASE EVENT DATE: 20170606
